FAERS Safety Report 7524937-X (Version None)
Quarter: 2011Q2

REPORT INFORMATION
  Report Type: 
  Country: None (occurrence: None)
  Receive Date: 20110606
  Receipt Date: 20110523
  Transmission Date: 20111010
  Serious: Yes (Death)
  Sender: FDA-Public Use
  Company Number: GB-ELI_LILLY_AND_COMPANY-GB201101001923

PATIENT
  Age: 83 Year
  Sex: Female
  Weight: 71 kg

DRUGS (5)
  1. AMISULPRIDE [Concomitant]
     Indication: PSYCHOTIC DISORDER
     Dosage: 150 MG, UNK
     Route: 048
     Dates: end: 20101006
  2. ESCITALOPRAM [Concomitant]
     Indication: DEPRESSION
     Dosage: 5 MG, DAILY (1/D)
     Route: 048
  3. ASPIRIN [Concomitant]
     Indication: CARDIOVASCULAR EVENT PROPHYLAXIS
     Dosage: 75 MG, DAILY (1/D)
     Route: 048
  4. ZYPREXA [Suspect]
     Indication: PSYCHOTIC DISORDER
     Dosage: 2.5 MG, QD
     Route: 048
     Dates: start: 20101018
  5. ALBUTEROL [Concomitant]
     Route: 055

REACTIONS (3)
  - PANCREATITIS ACUTE [None]
  - RENAL FAILURE ACUTE [None]
  - LOWER RESPIRATORY TRACT INFECTION [None]
